FAERS Safety Report 8480798-6 (Version None)
Quarter: 2012Q2

REPORT INFORMATION
  Report Type: 
  Country: None (occurrence: None)
  Receive Date: 20120622
  Receipt Date: 20120608
  Transmission Date: 20120825
  Serious: Yes (Hospitalization, Other)
  Sender: FDA-Public Use
  Company Number: 2012-001243

PATIENT
  Age: 71 Year
  Sex: Female

DRUGS (13)
  1. MIRAPEX [Concomitant]
  2. CRESTOR [Concomitant]
  3. ACTONEL [Suspect]
     Indication: OSTEOPENIA
     Dosage: 35 MG ONCE WEEKLY, ORAL
     Route: 048
     Dates: start: 20070716, end: 20071201
  4. DIOVAN [Concomitant]
  5. FLONASE [Concomitant]
  6. LABETALOL HCL [Concomitant]
  7. NEURONTIN [Concomitant]
  8. IMITREX /01044801/ (SUMATRIPTAN) [Concomitant]
  9. ALENDRONATE SODIUM [Suspect]
     Dosage: 70 MG ONCE WEEKLY
     Dates: start: 20090819, end: 20100301
  10. AMBIEN [Concomitant]
  11. PRILOSEC [Concomitant]
  12. NEXIUM [Concomitant]
  13. BUTALBITAL W/CAFFEINE/CODEINE/PARACETAMOL (BUTALBITAL, CAFFEINE, CODEI [Concomitant]

REACTIONS (12)
  - DEEP VEIN THROMBOSIS [None]
  - MOBILITY DECREASED [None]
  - ARTHRALGIA [None]
  - CONTUSION [None]
  - FEMUR FRACTURE [None]
  - FALL [None]
  - FRACTURE DISPLACEMENT [None]
  - FRACTURE NONUNION [None]
  - ANAEMIA POSTOPERATIVE [None]
  - CRANIOCEREBRAL INJURY [None]
  - WEIGHT BEARING DIFFICULTY [None]
  - POST PROCEDURAL PNEUMONIA [None]
